FAERS Safety Report 11624482 (Version 1)
Quarter: 2015Q4

REPORT INFORMATION
  Report Type: Report from Study
  Country: BR (occurrence: BR)
  Receive Date: 20151013
  Receipt Date: 20151013
  Transmission Date: 20160304
  Serious: Yes (Other)
  Sender: FDA-Public Use
  Company Number: PHHY2015BR122215

PATIENT
  Sex: Female
  Weight: 72 kg

DRUGS (2)
  1. TRILEPTAL [Suspect]
     Active Substance: OXCARBAZEPINE
     Dosage: 300 MG, TID
     Route: 065
  2. TRILEPTAL [Suspect]
     Active Substance: OXCARBAZEPINE
     Indication: SEIZURE
     Dosage: BID
     Route: 065

REACTIONS (6)
  - Communication disorder [Unknown]
  - Anencephaly [Unknown]
  - Seizure [Unknown]
  - Dementia Alzheimer^s type [Unknown]
  - Depersonalisation [Unknown]
  - Impaired self-care [Unknown]

NARRATIVE: CASE EVENT DATE: 2005
